FAERS Safety Report 25550250 (Version 3)
Quarter: 2025Q4

REPORT INFORMATION
  Report Type: Report from Study
  Country: US (occurrence: US)
  Receive Date: 20250714
  Receipt Date: 20251121
  Transmission Date: 20260118
  Serious: Yes (Hospitalization, Other)
  Sender: NOVARTIS
  Company Number: US-002147023-NVSC2025US075206

PATIENT
  Age: 74 Year
  Sex: Male

DRUGS (2)
  1. LEQVIO [Suspect]
     Active Substance: INCLISIRAN SODIUM
     Indication: Product used for unknown indication
     Dosage: UNK
     Route: 058
     Dates: start: 20250321
  2. LEQVIO [Suspect]
     Active Substance: INCLISIRAN SODIUM
     Dosage: UNK
     Route: 058
     Dates: start: 20250620

REACTIONS (13)
  - Acute kidney injury [Unknown]
  - Renal haemorrhage [Recovered/Resolved]
  - Arrhythmia [Unknown]
  - Cardiac disorder [Unknown]
  - Visual impairment [Unknown]
  - Chronic obstructive pulmonary disease [Recovering/Resolving]
  - Blood triglycerides abnormal [Not Recovered/Not Resolved]
  - Disturbance in attention [Unknown]
  - Dyspnoea [Unknown]
  - Gait disturbance [Unknown]
  - Balance disorder [Unknown]
  - Abdominal discomfort [Unknown]
  - Weight decreased [Unknown]

NARRATIVE: CASE EVENT DATE: 20250620
